FAERS Safety Report 23112567 (Version 1)
Quarter: 2023Q4

REPORT INFORMATION
  Report Type: Spontaneous
  Country: US (occurrence: US)
  Receive Date: 20231027
  Receipt Date: 20231027
  Transmission Date: 20240110
  Serious: Yes (Life-Threatening, Hospitalization)
  Sender: FDA-Public Use
  Company Number: US-drreddys-LIT/USA/23/0180551

PATIENT
  Age: 31 Year
  Sex: Female

DRUGS (3)
  1. DEXAMETHASONE [Suspect]
     Active Substance: DEXAMETHASONE
     Indication: COVID-19 pneumonia
  2. REMDESIVIR [Suspect]
     Active Substance: REMDESIVIR
     Indication: COVID-19 pneumonia
  3. NITRIC OXIDE [Suspect]
     Active Substance: NITRIC OXIDE
     Indication: COVID-19 pneumonia

REACTIONS (3)
  - Pulmonary mucormycosis [Unknown]
  - Exposure during pregnancy [Unknown]
  - Drug ineffective for unapproved indication [Unknown]
